FAERS Safety Report 19828493 (Version 1)
Quarter: 2021Q3

REPORT INFORMATION
  Report Type: Spontaneous
  Country: DE (occurrence: DE)
  Receive Date: 20210914
  Receipt Date: 20210914
  Transmission Date: 20211014
  Serious: Yes (Hospitalization)
  Sender: FDA-Public Use
  Company Number: DE-ASTRAZENECA-2021A711096

PATIENT
  Age: 67 Year
  Sex: Female
  Weight: 55 kg

DRUGS (2)
  1. METOCLOPRAMID [Concomitant]
     Active Substance: METOCLOPRAMIDE
     Dosage: 10 MG, 1?0?1?0
  2. OLAPARIB. [Suspect]
     Active Substance: OLAPARIB
     Dosage: SCHEME
     Route: 065

REACTIONS (7)
  - Abdominal distension [Recovering/Resolving]
  - Dehydration [Recovering/Resolving]
  - Systemic infection [Recovering/Resolving]
  - Condition aggravated [Recovering/Resolving]
  - Anaemia [Recovering/Resolving]
  - Vomiting [Recovering/Resolving]
  - General physical health deterioration [Recovering/Resolving]
